FAERS Safety Report 4376612-0 (Version None)
Quarter: 2004Q2

REPORT INFORMATION
  Report Type: 
  Country: None (occurrence: None)
  Receive Date: 20040608
  Receipt Date: 20040524
  Transmission Date: 20050107
  Serious: Yes (Hospitalization)
  Sender: FDA-Public Use
  Company Number: US-JNJFOC-20040301096

PATIENT
  Age: 65 Year
  Sex: Female

DRUGS (2)
  1. DURAGESIC [Suspect]
     Indication: PAIN
     Dosage: SEE IMAGE
     Route: 062
     Dates: start: 20000101
  2. DURAGESIC [Suspect]

REACTIONS (3)
  - DEATH OF RELATIVE [None]
  - DEPRESSION [None]
  - FIBROMYALGIA [None]
